FAERS Safety Report 6425588-0 (Version None)
Quarter: 2009Q4

REPORT INFORMATION
  Report Type: 
  Country: None (occurrence: None)
  Receive Date: 20091103
  Receipt Date: 20091022
  Transmission Date: 20100525
  Serious: Yes (Other)
  Sender: FDA-Public Use
  Company Number: BR-PFIZER INC-2009204480

PATIENT
  Sex: Male
  Weight: 93 kg

DRUGS (3)
  1. GEODON [Suspect]
     Indication: BIPOLAR DISORDER
     Dosage: 80 MG, 2X/DAY
     Dates: start: 20030101
  2. ZYPREXA [Concomitant]
     Dosage: UNK
  3. TOPIRAMATE [Concomitant]
     Dosage: UNK

REACTIONS (4)
  - HALLUCINATION, AUDITORY [None]
  - INSOMNIA [None]
  - WEIGHT DECREASED [None]
  - WEIGHT INCREASED [None]
